FAERS Safety Report 9058794 (Version 3)
Quarter: 2014Q2

REPORT INFORMATION
  Report Type: Spontaneous
  Country: US (occurrence: US)
  Receive Date: 20130204
  Receipt Date: 20140414
  Transmission Date: 20141212
  Serious: No
  Sender: FDA-Public Use
  Company Number: US-009507513-1301USA014631

PATIENT
  Sex: Male

DRUGS (4)
  1. PROPECIA [Suspect]
     Indication: ANDROGENETIC ALOPECIA
     Dosage: 1 MG, QD
     Route: 048
     Dates: start: 20080306, end: 20100311
  2. PROPECIA [Suspect]
     Indication: ALOPECIA
  3. LOPRESSOR HCT [Suspect]
     Indication: HYPERTENSION
     Dosage: 100/50, BID
     Dates: end: 19990217
  4. LOPRESSOR HCT [Suspect]
     Dosage: 100/25, BID

REACTIONS (7)
  - Memory impairment [Not Recovered/Not Resolved]
  - Loss of libido [Not Recovered/Not Resolved]
  - Apathy [Not Recovered/Not Resolved]
  - Confusional state [Not Recovered/Not Resolved]
  - Cognitive disorder [Not Recovered/Not Resolved]
  - Sexual dysfunction [Not Recovered/Not Resolved]
  - Blood cholesterol increased [Unknown]
